FAERS Safety Report 8270612-6 (Version None)
Quarter: 2012Q2

REPORT INFORMATION
  Report Type: 
  Country: None (occurrence: None)
  Receive Date: 20120410
  Receipt Date: 20120404
  Transmission Date: 20120825
  Serious: No
  Sender: FDA-Public Use
  Company Number: US-B.I. PHARMACEUTICALS,INC./RIDGEFIELD-2012-BP-04374BP

PATIENT
  Sex: Female
  Weight: 85.73 kg

DRUGS (8)
  1. PRADAXA [Suspect]
     Indication: ATRIAL FIBRILLATION
     Dosage: 300 MG
     Route: 048
     Dates: start: 20120214, end: 20120214
  2. DROPS FOR GLAUCOMA [Concomitant]
     Indication: GLAUCOMA
  3. LOSARTAN POTASSIUM [Concomitant]
     Indication: HYPERTENSION
  4. XALATAN [Concomitant]
     Indication: GLAUCOMA
  5. PRADAXA [Suspect]
     Indication: CEREBROVASCULAR ACCIDENT PROPHYLAXIS
  6. QUESTRAN [Concomitant]
     Indication: BLOOD CHOLESTEROL
  7. CHOLESTEROL POWDER [Concomitant]
     Indication: BLOOD CHOLESTEROL INCREASED
  8. TIMOPTIC [Concomitant]
     Indication: GLAUCOMA

REACTIONS (2)
  - VISUAL ACUITY REDUCED [None]
  - EYE DISORDER [None]
